FAERS Safety Report 7571877-6 (Version None)
Quarter: 2011Q2

REPORT INFORMATION
  Report Type: 
  Country: None (occurrence: None)
  Receive Date: 20110624
  Receipt Date: 20100602
  Transmission Date: 20111010
  Serious: No
  Sender: FDA-Public Use
  Company Number: A0865175A

PATIENT
  Age: 5 Year
  Sex: Female
  Weight: 18.6 kg

DRUGS (1)
  1. VERAMYST [Suspect]
     Route: 065

REACTIONS (3)
  - RASH [None]
  - JOINT SWELLING [None]
  - OEDEMA PERIPHERAL [None]
